FAERS Safety Report 24766735 (Version 1)
Quarter: 2024Q4

REPORT INFORMATION
  Report Type: Report from Study
  Country: US (occurrence: US)
  Receive Date: 20241223
  Receipt Date: 20241223
  Transmission Date: 20250114
  Serious: Yes (Hospitalization)
  Sender: EISAI
  Company Number: US-Eisai-EC-2024-181042

PATIENT
  Age: 66 Year
  Sex: Male
  Weight: 129 kg

DRUGS (33)
  1. LENVIMA [Suspect]
     Active Substance: LENVATINIB
     Indication: Renal cancer
     Route: 048
     Dates: end: 20240228
  2. LENVIMA [Suspect]
     Active Substance: LENVATINIB
     Route: 048
     Dates: start: 20240306, end: 20240423
  3. LENVIMA [Suspect]
     Active Substance: LENVATINIB
     Route: 048
     Dates: start: 2024, end: 2024
  4. LENVIMA [Suspect]
     Active Substance: LENVATINIB
     Route: 048
     Dates: start: 2024
  5. CARVEDILOL [Concomitant]
     Active Substance: CARVEDILOL
  6. JARDIANCE [Concomitant]
     Active Substance: EMPAGLIFLOZIN
  7. LEVOTHYROXINE [Concomitant]
     Active Substance: LEVOTHYROXINE
  8. NORCO [Concomitant]
     Active Substance: ACETAMINOPHEN\HYDROCODONE BITARTRATE
  9. GEMTESA [Concomitant]
     Active Substance: VIBEGRON
  10. TAMSULOSIN [Concomitant]
     Active Substance: TAMSULOSIN
  11. POTASSIUM CHLORIDE [Concomitant]
     Active Substance: POTASSIUM CHLORIDE
  12. ENTRESTO [Concomitant]
     Active Substance: SACUBITRIL\VALSARTAN
  13. TRAZODONE [Concomitant]
     Active Substance: TRAZODONE HYDROCHLORIDE
  14. HUMULIN R [Concomitant]
     Active Substance: INSULIN HUMAN
  15. VITAMINS [Concomitant]
     Active Substance: VITAMINS
  16. BACLOFEN [Concomitant]
     Active Substance: BACLOFEN
  17. FISH OILS [Concomitant]
  18. TOLTERODINE [Concomitant]
     Active Substance: TOLTERODINE
  19. PREGABALIN [Concomitant]
     Active Substance: PREGABALIN
  20. LOW DOSE ASPIRIN [Concomitant]
     Active Substance: ASPIRIN
  21. HYDROCHLOROTHIAZIDE [Concomitant]
     Active Substance: HYDROCHLOROTHIAZIDE
  22. TROSPIUM [Concomitant]
     Active Substance: TROSPIUM
  23. AMLODIPINE [Concomitant]
     Active Substance: AMLODIPINE BESYLATE
  24. DULOXETINE [Concomitant]
     Active Substance: DULOXETINE
  25. VITAMIN D3 [Concomitant]
     Active Substance: CHOLECALCIFEROL
  26. MOUNJARO [Concomitant]
     Active Substance: TIRZEPATIDE
  27. PEMBROLIZUMAB [Concomitant]
     Active Substance: PEMBROLIZUMAB
     Indication: Renal cancer
     Route: 042
  28. ONDANSETRON [Concomitant]
     Active Substance: ONDANSETRON
  29. PROCHLORPERAZINE [Concomitant]
     Active Substance: PROCHLORPERAZINE
  30. ATORVASTATIN [Concomitant]
     Active Substance: ATORVASTATIN
  31. CENTRUM SILVER 50+ MEN [Concomitant]
  32. CHLORHEXIDINE MOUTH/THROAT [Concomitant]
  33. ACETAMINOPHEN\HYDROCODONE [Concomitant]
     Active Substance: ACETAMINOPHEN\HYDROCODONE

REACTIONS (1)
  - Diabetes mellitus [Recovering/Resolving]

NARRATIVE: CASE EVENT DATE: 20240101
